FAERS Safety Report 15675857 (Version 2)
Quarter: 2018Q4

REPORT INFORMATION
  Report Type: Spontaneous
  Country: US (occurrence: US)
  Receive Date: 20181130
  Receipt Date: 20181210
  Transmission Date: 20190205
  Serious: Yes (Other)
  Sender: FDA-Public Use
  Company Number: US-ALLERGAN-1855045US

PATIENT
  Age: 50 Year
  Sex: Female

DRUGS (7)
  1. PROGESTERONE. [Concomitant]
     Active Substance: PROGESTERONE
     Indication: SUPPLEMENTATION THERAPY
     Dosage: UNK
  2. HUMIRA [Concomitant]
     Active Substance: ADALIMUMAB
     Indication: CROHN^S DISEASE
     Dosage: UNK
  3. TESTOSTERON [Concomitant]
     Active Substance: TESTOSTERONE
     Indication: SUPPLEMENTATION THERAPY
     Dosage: FORMULATION: PELLET
  4. VITAMIN D [Concomitant]
     Active Substance: CHOLECALCIFEROL
     Indication: VITAMIN D DEFICIENCY
     Dosage: UNK
  5. ARMOUR THYROID [Suspect]
     Active Substance: THYROID, PORCINE
     Indication: HYPOTHYROIDISM
     Dosage: 60 MG, QD
     Route: 048
     Dates: start: 201705
  6. ESTROGEN [Concomitant]
     Active Substance: ESTROGENS
     Indication: SUPPLEMENTATION THERAPY
     Dosage: FORMULATION: PELLET
  7. VITAMIN B [Concomitant]
     Active Substance: VITAMIN B
     Indication: VITAMIN B COMPLEX DEFICIENCY
     Dosage: UNK

REACTIONS (6)
  - Red blood cell count decreased [Recovered/Resolved]
  - Haemoglobin increased [Not Recovered/Not Resolved]
  - Surgery [Recovered/Resolved]
  - Red blood cell count increased [Not Recovered/Not Resolved]
  - Haematocrit decreased [Recovered/Resolved]
  - Haematocrit increased [Not Recovered/Not Resolved]

NARRATIVE: CASE EVENT DATE: 2018
